FAERS Safety Report 20321423 (Version 1)
Quarter: 2022Q1

REPORT INFORMATION
  Report Type: Spontaneous
  Country: US (occurrence: None)
  Receive Date: 20220110
  Receipt Date: 20220110
  Transmission Date: 20220423
  Serious: Yes (Hospitalization)
  Sender: FDA-Public Use
  Company Number: None

PATIENT
  Sex: Female

DRUGS (2)
  1. ENTYVIO [Suspect]
     Active Substance: VEDOLIZUMAB
     Indication: Colitis ulcerative
     Route: 042
     Dates: start: 202110
  2. ENTYVIO [Suspect]
     Active Substance: VEDOLIZUMAB
     Indication: Gastroenteritis

REACTIONS (2)
  - Colitis [None]
  - Therapy interrupted [None]
